FAERS Safety Report 25538011 (Version 1)
Quarter: 2025Q3

REPORT INFORMATION
  Report Type: Spontaneous
  Country: EU (occurrence: EU)
  Receive Date: 20250710
  Receipt Date: 20250710
  Transmission Date: 20251021
  Serious: Yes (Other)
  Sender: GE HEALTHCARE
  Company Number: None

PATIENT
  Age: 22 Year
  Sex: Female

DRUGS (1)
  1. IOHEXOL [Suspect]
     Active Substance: IOHEXOL
     Indication: Computerised tomogram
     Route: 042
     Dates: start: 2013, end: 2013

REACTIONS (4)
  - Malaise [Recovered/Resolved]
  - Vomiting [Recovered/Resolved]
  - Anaphylactoid reaction [Recovered/Resolved]
  - Contrast media allergy [Recovered/Resolved]

NARRATIVE: CASE EVENT DATE: 20130101
